FAERS Safety Report 9085996 (Version 1)
Quarter: 2013Q1

REPORT INFORMATION
  Report Type: Spontaneous
  Country: US (occurrence: US)
  Receive Date: 20130131
  Receipt Date: 20130131
  Transmission Date: 20140127
  Serious: No
  Sender: FDA-Public Use
  Company Number: US-ABBOTT-12P-163-0998363-00

PATIENT
  Sex: Male

DRUGS (1)
  1. HUMIRA [Suspect]
     Indication: PSORIASIS
     Dates: start: 2011, end: 201205

REACTIONS (7)
  - Multiple sclerosis [Recovering/Resolving]
  - Pain [Recovering/Resolving]
  - Periodic limb movement disorder [Recovering/Resolving]
  - Paraesthesia [Recovering/Resolving]
  - Spinal cord disorder [Recovering/Resolving]
  - CSF test abnormal [Recovering/Resolving]
  - CSF test abnormal [Recovering/Resolving]
